FAERS Safety Report 10069758 (Version 1)
Quarter: 2014Q2

REPORT INFORMATION
  Report Type: Spontaneous
  Country: US (occurrence: US)
  Receive Date: 20140410
  Receipt Date: 20140410
  Transmission Date: 20141212
  Serious: No
  Sender: FDA-Public Use
  Company Number: US-PFIZER INC-2014096959

PATIENT
  Age: 59 Year
  Sex: Male
  Weight: 88.44 kg

DRUGS (4)
  1. FLECTOR [Suspect]
     Indication: INTERVERTEBRAL DISC PROTRUSION
     Dosage: UNK
     Dates: start: 201403
  2. FLECTOR [Suspect]
     Indication: INTERVERTEBRAL DISC PROTRUSION
  3. FLECTOR [Suspect]
     Indication: INTERVERTEBRAL DISC DEGENERATION
  4. FLECTOR [Suspect]
     Indication: INTERVERTEBRAL DISC DEGENERATION

REACTIONS (4)
  - Nasopharyngitis [Recovered/Resolved]
  - Pyrexia [Recovered/Resolved]
  - Hyperhidrosis [Recovered/Resolved]
  - Application site exfoliation [Unknown]
